FAERS Safety Report 5754896-1 (Version None)
Quarter: 2008Q2

REPORT INFORMATION
  Report Type: 
  Country: None (occurrence: None)
  Receive Date: 20080527
  Receipt Date: 20080516
  Transmission Date: 20081010
  Serious: Yes (Disabling)
  Sender: FDA-Public Use
  Company Number: TRP_05724_2008

PATIENT
  Age: 54 Year
  Sex: Male

DRUGS (2)
  1. INFERGEN [Suspect]
     Indication: HEPATITIS C VIRUS
     Dosage: 15 UG QD SUBCUTANEOUS
     Route: 058
     Dates: start: 20071001
  2. RIBAVIRIN [Suspect]
     Indication: HEPATITIS C VIRUS
     Dosage: 1200 MG [200 MG X 6)] ORAL
     Route: 048
     Dates: start: 20071001

REACTIONS (3)
  - JOINT RANGE OF MOTION DECREASED [None]
  - MUSCULOSKELETAL PAIN [None]
  - PAIN [None]
